FAERS Safety Report 7036323-X (Version None)
Quarter: 2010Q4

REPORT INFORMATION
  Report Type: 
  Country: None (occurrence: None)
  Receive Date: 20101008
  Receipt Date: 20100929
  Transmission Date: 20110411
  Serious: Yes (Hospitalization)
  Sender: FDA-Public Use
  Company Number: US-AMGEN-KDL443017

PATIENT
  Sex: Male
  Weight: 81.7 kg

DRUGS (9)
  1. PROCRIT [Suspect]
     Indication: PRODUCT USED FOR UNKNOWN INDICATION
     Route: 058
     Dates: start: 20040101, end: 20100901
  2. ALFUZOSIN [Concomitant]
     Route: 048
  3. LUMIGAN [Concomitant]
  4. LUNESTA [Concomitant]
     Route: 048
  5. NEXIUM [Concomitant]
     Route: 048
  6. LASIX [Concomitant]
     Route: 048
  7. MYFORTIC [Concomitant]
     Route: 048
  8. PROGRAF [Concomitant]
     Route: 048
  9. CALCIUM/VITAMIN D [Concomitant]
     Route: 048

REACTIONS (2)
  - RASH [None]
  - RENAL TRANSPLANT [None]
